FAERS Safety Report 8050106-3 (Version None)
Quarter: 2012Q1

REPORT INFORMATION
  Report Type: 
  Country: None (occurrence: None)
  Receive Date: 20120111
  Receipt Date: 20120103
  Transmission Date: 20120608
  Serious: Yes (Other)
  Sender: FDA-Public Use
  Company Number: DSA_48050_2011

PATIENT
  Sex: Male

DRUGS (2)
  1. BENICAR [Concomitant]
  2. DILTIAZEM [Suspect]
     Indication: PRODUCT USED FOR UNKNOWN INDICATION
     Dosage: (240 MG QD ORAL)
     Route: 048
     Dates: start: 20111001, end: 20111001

REACTIONS (6)
  - PRODUCT QUALITY ISSUE [None]
  - NAUSEA [None]
  - BLOOD PRESSURE INCREASED [None]
  - PRODUCT SUBSTITUTION ISSUE [None]
  - HEADACHE [None]
  - HEART RATE INCREASED [None]
